FAERS Safety Report 18339333 (Version 1)
Quarter: 2020Q4

REPORT INFORMATION
  Report Type: Spontaneous
  Country: IR (occurrence: IR)
  Receive Date: 20201002
  Receipt Date: 20201002
  Transmission Date: 20210113
  Serious: Yes (Other)
  Sender: FDA-Public Use
  Company Number: None

PATIENT
  Sex: Female
  Weight: 55 kg

DRUGS (2)
  1. CABERGOLINE. [Suspect]
     Active Substance: CABERGOLINE
  2. JADENU [Suspect]
     Active Substance: DEFERASIROX

REACTIONS (3)
  - Abdominal discomfort [None]
  - Eye allergy [None]
  - Hypersensitivity [None]
